FAERS Safety Report 6270761-8 (Version None)
Quarter: 2009Q3

REPORT INFORMATION
  Report Type: 
  Country: None (occurrence: None)
  Receive Date: 20090714
  Receipt Date: 20090708
  Transmission Date: 20100115
  Serious: Yes (Other)
  Sender: FDA-Public Use
  Company Number: GXKR2009DE07776

PATIENT
  Age: 74 Year
  Sex: Male

DRUGS (3)
  1. VERAPAMIL [Suspect]
     Dosage: , ORAL
     Route: 048
  2. IBUPROFEN [Concomitant]
  3. ENALAPRIL MALEATE [Concomitant]

REACTIONS (3)
  - BLOOD CREATINE PHOSPHOKINASE INCREASED [None]
  - MUSCULAR WEAKNESS [None]
  - MYALGIA [None]
